FAERS Safety Report 8055461-6 (Version None)
Quarter: 2012Q1

REPORT INFORMATION
  Report Type: 
  Country: None (occurrence: None)
  Receive Date: 20120119
  Receipt Date: 20120116
  Transmission Date: 20120608
  Serious: No
  Sender: FDA-Public Use
  Company Number: US-TEVA-318056USA

PATIENT
  Sex: Female
  Weight: 68.1 kg

DRUGS (3)
  1. PROZAC [Concomitant]
     Indication: DEPRESSION
  2. PLAN B ONE-STEP [Suspect]
     Indication: POST COITAL CONTRACEPTION
     Dosage: 1.5 MILLIGRAM;
     Route: 048
     Dates: start: 20111201, end: 20111201
  3. ZYBAN [Concomitant]
     Indication: LEARNING DISABILITY

REACTIONS (3)
  - PAIN [None]
  - MENSTRUATION IRREGULAR [None]
  - NAUSEA [None]
